FAERS Safety Report 7955184-5 (Version None)
Quarter: 2011Q4

REPORT INFORMATION
  Report Type: 
  Country: None (occurrence: None)
  Receive Date: 20111202
  Receipt Date: 20111123
  Transmission Date: 20120403
  Serious: Yes (Other)
  Sender: FDA-Public Use
  Company Number: PHHY2011BR95353

PATIENT
  Sex: Female

DRUGS (8)
  1. CALCIUM [Concomitant]
     Indication: HYPERTENSION
     Dosage: UNK UKN, UNK
  2. VITAMIN D [Concomitant]
     Indication: HYPERTENSION
     Dosage: UNK UKN, UNK
  3. SUPRADYN [Concomitant]
     Indication: HYPERTENSION
     Dosage: UNK UKN, UNK
  4. METFORMIN HCL [Concomitant]
     Indication: DIABETES MELLITUS
  5. CONDROFLEX [Concomitant]
     Dosage: UNK UKN, UNK
  6. TEGRETOL-XR [Suspect]
     Dosage: 200 MG, UNK
  7. TEGRETOL [Suspect]
     Indication: NERVOUS SYSTEM DISORDER
     Dosage: 2 DF, DAILY
     Dates: start: 19750101
  8. LOSARTAN POTASSIUM [Concomitant]
     Indication: HYPERTENSION
     Dosage: UNK UKN, UNK

REACTIONS (3)
  - DIABETES MELLITUS [None]
  - OSTEOPOROSIS [None]
  - OSTEOPENIA [None]
